FAERS Safety Report 8532833-4 (Version None)
Quarter: 2012Q3

REPORT INFORMATION
  Report Type: 
  Country: None (occurrence: None)
  Receive Date: 20120724
  Receipt Date: 20120716
  Transmission Date: 20120928
  Serious: Yes (Hospitalization)
  Sender: FDA-Public Use
  Company Number: LB-SANOFI-AVENTIS-2012SA050850

PATIENT
  Age: 74 Year
  Sex: Female

DRUGS (14)
  1. GLYCERIN [Concomitant]
     Indication: CONSTIPATION
  2. CAFFEINE/CODEINE PHOSPHATE/PARACETAMOL [Concomitant]
     Indication: ARTHRITIS
  3. FLUTICASONE PROPIONATE/SALMETEROL [Concomitant]
     Dosage: I INHALATION DAILY
     Route: 055
  4. MOTILIUM [Concomitant]
     Indication: NAUSEA
  5. LACTULOSE [Concomitant]
     Indication: CONSTIPATION
  6. SIMVASTATIN [Concomitant]
     Route: 048
  7. COLCHICINE [Concomitant]
     Indication: ARTHRITIS
     Dosage: I TAB IN THE MORNING AND 0.5 TAB IN THE EVENING
  8. METFORMIN HCL [Concomitant]
     Dosage: DOSE: 0.5 TAB MOR AND 01 TAB EVE
     Route: 048
  9. TRIMETAZIDINE HYDROCHLORIDE [Concomitant]
     Route: 048
  10. IRBESARTAN AND HYDROCHLOROTHIAZIDE [Suspect]
     Indication: HYPERTENSION
     Dosage: DOSE: 300/12.5 MG
     Route: 048
     Dates: start: 20000101
  11. PLAVIX [Suspect]
     Indication: CORONARY ARTERY DISEASE
     Route: 048
     Dates: start: 20000101
  12. DEANXIT [Concomitant]
     Dosage: 1 TABLET MORNING
     Route: 048
  13. DECALCIT [Concomitant]
     Route: 048
  14. DILTIAZEM HCL [Suspect]
     Indication: HYPERTENSION
     Route: 048
     Dates: start: 20000101

REACTIONS (1)
  - ANAL SPHINCTER HYPERTONIA [None]
